FAERS Safety Report 21597594 (Version 1)
Quarter: 2022Q4

REPORT INFORMATION
  Report Type: Spontaneous
  Country: US (occurrence: US)
  Receive Date: 20221115
  Receipt Date: 20221115
  Transmission Date: 20230113
  Serious: No
  Sender: FDA-Public Use
  Company Number: US-AMNEAL PHARMACEUTICALS-2022-AMRX-02580

PATIENT
  Sex: Female
  Weight: 57.596 kg

DRUGS (2)
  1. ISOTRETINOIN [Suspect]
     Active Substance: ISOTRETINOIN
     Indication: Acne
     Dosage: 40 MG CAPSULE, 1 /DAY
     Route: 065
     Dates: end: 20220719
  2. NADOLOL [Concomitant]
     Active Substance: NADOLOL
     Indication: Electrocardiogram QT prolonged
     Dosage: UNK
     Route: 065

REACTIONS (2)
  - Personality change [Unknown]
  - Depression [Unknown]
